FAERS Safety Report 16061705 (Version 5)
Quarter: 2019Q3

REPORT INFORMATION
  Report Type: Spontaneous
  Country: US (occurrence: US)
  Receive Date: 20190312
  Receipt Date: 20190814
  Transmission Date: 20191004
  Serious: Yes (Other)
  Sender: FDA-Public Use
  Company Number: US-PFIZER INC-2018379316

PATIENT
  Age: 64 Year
  Sex: Female
  Weight: 70 kg

DRUGS (4)
  1. IBRANCE [Suspect]
     Active Substance: PALBOCICLIB
     Dosage: 75 MG, CYCLIC (ONCE A DAY FOR 21 DAYS, THEN 7 DAYS)
     Dates: start: 201712
  2. IBRANCE [Suspect]
     Active Substance: PALBOCICLIB
     Indication: INFLAMMATORY CARCINOMA OF BREAST STAGE IV
     Dosage: 125 MG, UNK
     Dates: start: 201709
  3. IBRANCE [Suspect]
     Active Substance: PALBOCICLIB
     Dosage: 100 MG, UNK
  4. IBRANCE [Suspect]
     Active Substance: PALBOCICLIB
     Dosage: 75 MG, UNK

REACTIONS (14)
  - Fatigue [Unknown]
  - White blood cell count decreased [Unknown]
  - Red blood cell count decreased [Unknown]
  - Full blood count decreased [Unknown]
  - Second primary malignancy [Unknown]
  - Neutrophil count decreased [Unknown]
  - Philadelphia chromosome negative [Unknown]
  - Blood bilirubin increased [Unknown]
  - Asthenia [Unknown]
  - Gait disturbance [Unknown]
  - Platelet count decreased [Unknown]
  - Bone marrow failure [Unknown]
  - Acute leukaemia [Unknown]
  - Haemoglobin decreased [Unknown]
